FAERS Safety Report 5424815-6 (Version None)
Quarter: 2007Q3

REPORT INFORMATION
  Report Type: 
  Country: None (occurrence: None)
  Receive Date: 20070824
  Receipt Date: 20070726
  Transmission Date: 20080115
  Serious: Yes (Other)
  Sender: FDA-Public Use
  Company Number: JP-BRISTOL-MYERS SQUIBB COMPANY-13886056

PATIENT
  Age: 60 Year
  Sex: Female

DRUGS (1)
  1. ENDOXAN [Suspect]
     Route: 041

REACTIONS (1)
  - PANCREATITIS ACUTE [None]
